FAERS Safety Report 8422479-0 (Version None)
Quarter: 2012Q2

REPORT INFORMATION
  Report Type: 
  Country: None (occurrence: None)
  Receive Date: 20120604
  Receipt Date: 20120523
  Transmission Date: 20120825
  Serious: Yes (Other)
  Sender: FDA-Public Use
  Company Number: B0804965A

PATIENT

DRUGS (4)
  1. TEMOZOLOMIDE [Suspect]
     Indication: GLIOBLASTOMA MULTIFORME
     Dosage: 150 MG/M2
  2. TOPOTECAN HYDROCHLORIDE [Suspect]
     Indication: GLIOBLASTOMA MULTIFORME
     Dosage: ORAL
     Route: 048
  3. BEVACIZUMAB (FORMULATION UNKNOWN) (BEVACIZUMAB) [Suspect]
     Indication: GLIOBLASTOMA MULTIFORME
     Dosage: 10 MG/KG
  4. RADIOTHERAPY [Concomitant]
     Indication: GLIOBLASTOMA MULTIFORME

REACTIONS (1)
  - AORTIC THROMBOSIS [None]
